FAERS Safety Report 16212873 (Version 1)
Quarter: 2019Q2

REPORT INFORMATION
  Report Type: Spontaneous
  Country: HU (occurrence: HU)
  Receive Date: 20190418
  Receipt Date: 20190418
  Transmission Date: 20190711
  Serious: Yes (Other)
  Sender: FDA-Public Use
  Company Number: HU-ASTRAZENECA-2019SE55696

PATIENT
  Age: 55 Year
  Sex: Female

DRUGS (4)
  1. BONESSA [Concomitant]
     Active Substance: IBANDRONATE SODIUM
  2. IBRANCE [Suspect]
     Active Substance: PALBOCICLIB
     Indication: BREAST CANCER
     Dosage: 125 MG, CYCLIC (3 WEEKS ON/1 WEEK OFF)
     Route: 048
     Dates: start: 20180130, end: 201902
  3. FULVESTRANT. [Suspect]
     Active Substance: FULVESTRANT
     Indication: BREAST CANCER
     Dosage: 500 MG, CYCLIC (3 WEEKS ON/1 WEEK OFF)
     Route: 030
  4. IBRANCE [Suspect]
     Active Substance: PALBOCICLIB
     Dosage: 100.0MG EVERY CYCLE
     Route: 048
     Dates: start: 201903

REACTIONS (2)
  - Influenza like illness [Unknown]
  - Neutropenia [Recovered/Resolved]
